FAERS Safety Report 7472920 (Version 5)
Quarter: 2014Q2

REPORT INFORMATION
  Report Type: Spontaneous
  Country: US (occurrence: US)
  Receive Date: 20100714
  Receipt Date: 20140507
  Transmission Date: 20141212
  Serious: Yes (Other)
  Sender: FDA-Public Use
  Company Number: US-BAYER-201027578NA

PATIENT
  Age: 21 Year
  Sex: Female
  Weight: 52 kg

DRUGS (10)
  1. YAZ [Suspect]
     Indication: PRODUCT USED FOR UNKNOWN INDICATION
  2. YASMIN [Suspect]
     Indication: ORAL CONTRACEPTION
     Route: 048
     Dates: start: 2003, end: 2005
  3. NSAID^S [Concomitant]
     Dates: start: 2000, end: 2010
  4. TEGRETOL [Concomitant]
     Dates: start: 2007
  5. EPITOL [Concomitant]
     Indication: BIPOLAR DISORDER
     Dates: start: 2008
  6. PROZAC [Concomitant]
     Indication: BIPOLAR DISORDER
     Dates: start: 2008
  7. TRAMADOL [Concomitant]
     Indication: SLEEP DISORDER
     Dates: start: 2008
  8. ANTIMIGRAINE PREPARATIONS [Concomitant]
     Indication: MIGRAINE
     Dates: start: 2008
  9. ANTIMIGRAINE PREPARATIONS [Concomitant]
     Dates: start: 2008
  10. SYMBYAX [Concomitant]

REACTIONS (2)
  - Cholecystectomy [None]
  - Cholecystitis chronic [None]
